FAERS Safety Report 9539726 (Version 1)
Quarter: 2013Q2

REPORT INFORMATION
  Report Type: Spontaneous
  Country: US (occurrence: None)
  Receive Date: 20130521
  Receipt Date: 20130521
  Transmission Date: 20140414
  Serious: No
  Sender: FDA-Public Use
  Company Number: 1000043443

PATIENT
  Age: 72 Year
  Sex: Female

DRUGS (7)
  1. TUDORZA PRESSAIR [Suspect]
     Indication: CHRONIC OBSTRUCTIVE PULMONARY DISEASE
     Dosage: 400MCG (400 MCG, 1 IN 1 D), RESPIRATORY (INHALATION)
     Route: 055
     Dates: start: 20130314, end: 20130314
  2. ALPRAZOLAM (ALPRAZOLAM) (ALPRAZOLAM) [Concomitant]
  3. DILTIAZEM (DILTIAZEM HYDROCHLORIDE) (DILTIAZEM HYDROCHLORIDED)? [Concomitant]
  4. PAROXETINE (PAROXETINE) (PAROXETINE) [Concomitant]
  5. CRESTOR (ROSUVASTATIN CALCIUM) (ROSUVASTATIN CALCIUM)? [Concomitant]
  6. TRAVATAN (TRAVOPROST) (DROPS) (TRAVOPROST) [Concomitant]
  7. FIBER (POLYCARBOPHIL CALCIUM) [Concomitant]

REACTIONS (1)
  - Diarrhoea [None]
